FAERS Safety Report 24831306 (Version 3)
Quarter: 2025Q1

REPORT INFORMATION
  Report Type: Report from Study
  Country: US (occurrence: US)
  Receive Date: 20250110
  Receipt Date: 20250328
  Transmission Date: 20250408
  Serious: Yes (Hospitalization)
  Sender: RECORDATI
  Company Number: US-RECORDATI RARE DISEASE INC.-2024010433

PATIENT
  Age: 22 Year
  Sex: Female
  Weight: 82.984 kg

DRUGS (12)
  1. CYSTADANE [Suspect]
     Active Substance: BETAINE
     Indication: Metabolic disorder
     Dosage: 6 GRAM, TID
     Route: 048
     Dates: end: 20241223
  2. CYSTADANE [Suspect]
     Active Substance: BETAINE
     Indication: Amino acid metabolism disorder
     Dosage: 6 GRAM, BID
     Route: 048
     Dates: start: 202412, end: 202412
  3. CYSTADANE [Suspect]
     Active Substance: BETAINE
     Indication: Vitamin B12 deficiency
     Dosage: 6 GRAM, BID
     Route: 048
     Dates: start: 202412, end: 20250123
  4. CYSTADANE [Suspect]
     Active Substance: BETAINE
     Dosage: 10 GRAM (10 SCOOPS), TID
     Route: 048
     Dates: start: 2025, end: 2025
  5. CYSTADANE [Suspect]
     Active Substance: BETAINE
     Dosage: 10 GRAM (10 SCOOPS), TID
     Route: 048
     Dates: start: 20250204
  6. LEUCOVORIN CALCIUM [Concomitant]
     Active Substance: LEUCOVORIN CALCIUM
     Indication: Product used for unknown indication
     Dosage: 5 MG, QD
     Route: 048
     Dates: start: 20021201
  7. LEVOCARNITINE [Concomitant]
     Active Substance: LEVOCARNITINE
     Indication: Product used for unknown indication
     Dosage: 200 MG, BID
     Route: 048
     Dates: start: 20021201
  8. METHIONINE [Concomitant]
     Active Substance: METHIONINE
     Indication: Product used for unknown indication
     Dosage: ONE-EIGHTH OF A TEASPOON (1/8 TSP), QD
     Route: 048
     Dates: start: 20021201
  9. VITAMIN D3 [Concomitant]
     Active Substance: CHOLECALCIFEROL
     Indication: Product used for unknown indication
     Dosage: 5 MILLILITER, QD
     Route: 048
     Dates: start: 20021201
  10. METHYLCOBALAMIN [Concomitant]
     Active Substance: METHYLCOBALAMIN
     Indication: Product used for unknown indication
     Dosage: 1 MILLILITER, QD
     Route: 030
     Dates: start: 20121201
  11. CLONIDINE HYDROCHLORIDE [Concomitant]
     Active Substance: CLONIDINE HYDROCHLORIDE
     Indication: Product used for unknown indication
     Dosage: 0.1 MG, BID (ORAL TABLET)
     Route: 048
     Dates: start: 20240612
  12. VIMPAT [Concomitant]
     Active Substance: LACOSAMIDE
     Indication: Product used for unknown indication
     Dosage: 1 AM AND 3 PM, BID (ORAL TABLET)
     Route: 048
     Dates: start: 20240612

REACTIONS (4)
  - Dehydration [Unknown]
  - Mental disorder [Unknown]
  - Gastrostomy [Unknown]
  - Metabolic disorder [Unknown]

NARRATIVE: CASE EVENT DATE: 20241226
